FAERS Safety Report 7309182-5 (Version None)
Quarter: 2011Q1

REPORT INFORMATION
  Report Type: 
  Country: None (occurrence: None)
  Receive Date: 20110223
  Receipt Date: 20110216
  Transmission Date: 20110831
  Serious: Yes (Death, Hospitalization)
  Sender: FDA-Public Use
  Company Number: JP-JNJFOC-20110203246

PATIENT
  Age: 90 Year
  Sex: Female
  Weight: 45 kg

DRUGS (5)
  1. AISLAR [Concomitant]
     Route: 065
  2. LENDORMIN [Concomitant]
     Route: 065
  3. RISPERDAL [Suspect]
     Indication: HALLUCINATION
     Route: 048
  4. RISPERDAL [Suspect]
     Indication: DELUSION
     Route: 048
  5. AMLODIPINE [Concomitant]
     Route: 065

REACTIONS (4)
  - VENTRICULAR FIBRILLATION [None]
  - OLIGURIA [None]
  - HYPOTHERMIA [None]
  - PANCREATITIS ACUTE [None]
